FAERS Safety Report 9395061 (Version 1)
Quarter: 2013Q3

REPORT INFORMATION
  Report Type: Report from Study
  Country: DE (occurrence: DE)
  Receive Date: 20130711
  Receipt Date: 20130711
  Transmission Date: 20140515
  Serious: Yes (Hospitalization, Disabling, Other)
  Sender: FDA-Public Use
  Company Number: DE-AMGEN-DEUCT2013017206

PATIENT
  Age: 67 Year
  Sex: Male
  Weight: 95 kg

DRUGS (5)
  1. ETANERCEPT [Suspect]
     Indication: PSORIASIS
     Dosage: 50 MG, QWK
     Route: 058
     Dates: start: 20111010, end: 20120606
  2. ETANERCEPT [Suspect]
     Dosage: 50 MG, QWK
     Route: 058
     Dates: start: 20120912, end: 20121006
  3. ETANERCEPT [Suspect]
     Dosage: 50 MG, WEEKLY
     Route: 058
     Dates: start: 20130307
  4. DERMATOP [Concomitant]
     Dosage: 1 X DAY
     Dates: start: 20111010
  5. TOPSYM [Concomitant]
     Dosage: SOLUTION 1X DAY
     Dates: start: 20111010

REACTIONS (5)
  - Skin ulcer [Recovered/Resolved with Sequelae]
  - Erysipelas [Not Recovered/Not Resolved]
  - Abscess [Not Recovered/Not Resolved]
  - Osteomyelitis [Recovered/Resolved]
  - Necrotising fasciitis [Recovered/Resolved with Sequelae]
